FAERS Safety Report 25649150 (Version 2)
Quarter: 2025Q3

REPORT INFORMATION
  Report Type: Report from Study
  Country: EG (occurrence: EG)
  Receive Date: 20250806
  Receipt Date: 20250819
  Transmission Date: 20251021
  Serious: Yes (Life-Threatening)
  Sender: ROCHE
  Company Number: EG-ROCHE-10000352804

PATIENT
  Age: 37 Year
  Sex: Male
  Weight: 110 kg

DRUGS (1)
  1. POLIVY [Suspect]
     Active Substance: POLATUZUMAB VEDOTIN-PIIQ
     Indication: Lymphoma
     Route: 042
     Dates: start: 20250422

REACTIONS (3)
  - White blood cell count decreased [Unknown]
  - Pyrexia [Unknown]
  - Renal impairment [Unknown]

NARRATIVE: CASE EVENT DATE: 20250627
